FAERS Safety Report 9839059 (Version 2)
Quarter: 2014Q1

REPORT INFORMATION
  Report Type: Report from Study
  Country: US (occurrence: US)
  Receive Date: 20140123
  Receipt Date: 20140123
  Transmission Date: 20141002
  Serious: Yes (Hospitalization, Other)
  Sender: FDA-Public Use
  Company Number: US-ABBVIE-13P-163-1068181-00

PATIENT
  Age: 47 Year
  Sex: Female
  Weight: 85.81 kg

DRUGS (8)
  1. HUMIRA [Suspect]
     Indication: RHEUMATOID ARTHRITIS
     Dates: start: 201206
  2. PLAQUENIL [Concomitant]
     Indication: RHEUMATOID ARTHRITIS
     Route: 048
  3. FOLIC ACID [Concomitant]
     Indication: RHEUMATOID ARTHRITIS
     Route: 048
  4. PREDNISONE [Concomitant]
     Indication: RHEUMATOID ARTHRITIS
     Route: 048
  5. XANAX [Concomitant]
     Indication: VERTIGO
     Route: 048
  6. LAMICTAL [Concomitant]
     Indication: MIGRAINE PROPHYLAXIS
     Dosage: AT NIGHT
     Route: 048
  7. PROPRANOLOL ER [Concomitant]
     Indication: MIGRAINE PROPHYLAXIS
     Route: 048
  8. EFFEXOR ER [Concomitant]
     Indication: ANXIETY
     Route: 048

REACTIONS (6)
  - Vaginal haemorrhage [Recovered/Resolved]
  - Respiratory tract congestion [Not Recovered/Not Resolved]
  - Cough [Not Recovered/Not Resolved]
  - Nasal congestion [Not Recovered/Not Resolved]
  - Rhinorrhoea [Not Recovered/Not Resolved]
  - Oropharyngeal pain [Not Recovered/Not Resolved]
